FAERS Safety Report 10007044 (Version 1)
Quarter: 2014Q1

REPORT INFORMATION
  Report Type: Spontaneous
  Country: US (occurrence: None)
  Receive Date: 20140312
  Receipt Date: 20140312
  Transmission Date: 20141002
  Serious: Yes (Other)
  Sender: FDA-Public Use
  Company Number: None

PATIENT
  Sex: 0

DRUGS (1)
  1. VICOTZA (LIRAGLUTIDE SOLUTION FOR INJECTION, 6MG/ML [Suspect]
     Indication: DIABETES MELLITUS

REACTIONS (2)
  - Paraesthesia oral [None]
  - Paraesthesia [None]
